FAERS Safety Report 9086193 (Version 2)
Quarter: 2013Q1

REPORT INFORMATION
  Report Type: Spontaneous
  Country: US (occurrence: US)
  Receive Date: 20130201
  Receipt Date: 20130304
  Transmission Date: 20140127
  Serious: No
  Sender: FDA-Public Use
  Company Number: US-PFIZER INC-2013040903

PATIENT
  Age: 65 Year
  Sex: Male
  Weight: 87.8 kg

DRUGS (17)
  1. LIPITOR [Suspect]
     Dosage: 10 MG, DAILY
     Route: 048
  2. CELEBREX [Suspect]
     Dosage: 200 MG, DAILY
     Route: 048
  3. VIAGRA [Suspect]
     Dosage: 100 MG, ONE TABLET PRIOR TO NEED
     Route: 048
  4. TOPROL XL [Concomitant]
     Dosage: 50 MG, ONE TABLET DAILY
     Route: 048
  5. ASPIRIN (E.C.) [Concomitant]
     Dosage: ON HOLD WHILE ON LOVENOX, THEN ONE 81 MG TABLET DAILY WITH FOOD
     Route: 048
  6. NITROGLYCERIN [Concomitant]
     Indication: CHEST PAIN
     Dosage: 0.4 MG, AS NEEDED
     Route: 060
  7. CENTRUM SILVER [Concomitant]
     Dosage: UNK, 1X/DAY
  8. FISH OIL [Concomitant]
     Dosage: 1000 MG, 2X/DAY
     Route: 048
  9. AMLODIPINE BESILATE [Concomitant]
     Dosage: 10 MG, 1X/DAY
     Route: 048
  10. PRILOSEC [Concomitant]
     Dosage: 20 MG, 2X/DAY
     Route: 048
  11. HYDROCHLOROTHIAZIDE [Concomitant]
     Dosage: 25 MG, DAILY
  12. SENOKOT-S [Concomitant]
     Dosage: 1 DF, 2X/DAY WHEN TAKING PAIN MEDICATION
     Route: 048
  13. HYDROCODONE W/ACETAMINOPHEN [Concomitant]
     Dosage: [HYDROCODONE 5MG]/ [ACETAMINPHEN 325 MG], ONE TO TWO TABLETS EVERY 6 HOURS
  14. KLONOPIN [Concomitant]
     Dosage: 0.5 MG, DAILY AT BEDTIME
  15. TRAZODONE HYDROCHLORIDE [Concomitant]
     Indication: INSOMNIA
     Dosage: 50 MG, ONE TABLET AT BEDTIME
  16. DOXYCYCLINE HYCLATE [Concomitant]
     Indication: CELLULITIS
     Dosage: 100 MG, 2X/DAY
     Route: 048
  17. HYDROXYZINE HYDROCHLORIDE [Concomitant]
     Dosage: 25 MG, 3X/DAY

REACTIONS (4)
  - Back pain [Unknown]
  - Rash [Unknown]
  - Dermatitis atopic [Unknown]
  - Myalgia [Unknown]
